FAERS Safety Report 9856052 (Version 2)
Quarter: 2016Q3

REPORT INFORMATION
  Report Type: Spontaneous
  Country: GB (occurrence: GB)
  Receive Date: 20140130
  Receipt Date: 20160923
  Transmission Date: 20161109
  Serious: Yes (Other)
  Sender: FDA-Public Use
  Company Number: GB-ROCHE-1340010

PATIENT
  Age: 25 Year
  Sex: Female

DRUGS (1)
  1. BEVACIZUMAB [Suspect]
     Active Substance: BEVACIZUMAB
     Indication: DIABETIC RETINOPATHY
     Route: 050

REACTIONS (4)
  - Product use issue [Unknown]
  - Pre-eclampsia [Unknown]
  - Off label use [Unknown]
  - Pregnancy [Unknown]
